FAERS Safety Report 10156688 (Version 2)
Quarter: 2014Q2

REPORT INFORMATION
  Report Type: Spontaneous
  Country: US (occurrence: US)
  Receive Date: 20140507
  Receipt Date: 20140617
  Transmission Date: 20141212
  Serious: No
  Sender: FDA-Public Use
  Company Number: US-009507513-1405USA003393

PATIENT
  Sex: Female

DRUGS (2)
  1. GRASTEK [Suspect]
     Indication: SEASONAL ALLERGY
     Dosage: 0.25 DF, QD; 1/4 OF TABLET AS A TRIAL DOSE
     Route: 060
  2. ZYRTEC [Concomitant]
     Dosage: UNK

REACTIONS (5)
  - Paraesthesia oral [Recovered/Resolved]
  - Urticaria [Recovered/Resolved]
  - Pruritus [Recovered/Resolved]
  - Discomfort [Recovered/Resolved]
  - Mouth swelling [Recovered/Resolved]
